FAERS Safety Report 6848526-5 (Version None)
Quarter: 2010Q3

REPORT INFORMATION
  Report Type: 
  Country: None (occurrence: None)
  Receive Date: 20100716
  Receipt Date: 20100706
  Transmission Date: 20110219
  Serious: Yes (Hospitalization, Other)
  Sender: FDA-Public Use
  Company Number: CH-GENENTECH-302379

PATIENT
  Sex: Male
  Weight: 89 kg

DRUGS (9)
  1. MABTHERA [Suspect]
     Indication: PULMONARY GRANULOMA
     Dosage: 800 MG, Q21D
     Route: 042
     Dates: start: 20100219, end: 20100510
  2. MABTHERA [Suspect]
     Dosage: 800 MG, Q21D
     Route: 042
     Dates: start: 20100510
  3. CYCLOPHOSPHAMIDE [Concomitant]
     Indication: PULMONARY GRANULOMA
     Dosage: UNK UNK, Q21D
     Dates: start: 20100219, end: 20100101
  4. DOXORUBICIN HCL [Concomitant]
     Indication: PULMONARY GRANULOMA
     Dosage: UNK
     Dates: start: 20100219, end: 20100101
  5. VINCRISTINE [Concomitant]
     Indication: PULMONARY GRANULOMA
     Dosage: UNK
     Dates: start: 20100219, end: 20100101
  6. PREDNISONE [Concomitant]
     Indication: PULMONARY GRANULOMA
     Dosage: UNK
     Dates: start: 20100219, end: 20100101
  7. ETOPOSIDE [Concomitant]
     Indication: PULMONARY GRANULOMA
     Dosage: UNK
     Dates: start: 20100101
  8. CARBOPLATIN [Concomitant]
     Indication: PULMONARY GRANULOMA
     Dosage: UNK
     Dates: start: 20100101
  9. IFOSFAMIDE [Concomitant]
     Indication: PULMONARY GRANULOMA
     Dosage: UNK
     Dates: start: 20100101

REACTIONS (1)
  - INTERSTITIAL LUNG DISEASE [None]
